FAERS Safety Report 4815666-1 (Version None)
Quarter: 2005Q4

REPORT INFORMATION
  Report Type: 
  Country: None (occurrence: None)
  Receive Date: 20051027
  Receipt Date: 20051021
  Transmission Date: 20060501
  Serious: Yes (Hospitalization)
  Sender: FDA-Public Use
  Company Number: 2005RR-00966

PATIENT
  Age: 72 Year
  Sex: Male

DRUGS (5)
  1. ASPIRIN [Suspect]
     Indication: ANGINA PECTORIS
     Dosage: 75 MG, QD, ORAL
     Route: 048
     Dates: start: 20030101, end: 20050901
  2. THIAMINE [Concomitant]
  3. METOPROLOL TARTRATE [Concomitant]
  4. BETAHISTINE (BETAHISTINE) [Concomitant]
  5. CALCICHEW [Concomitant]

REACTIONS (3)
  - GASTROINTESTINAL HAEMORRHAGE [None]
  - HIATUS HERNIA [None]
  - OESOPHAGITIS [None]
